FAERS Safety Report 8444608-5 (Version None)
Quarter: 2012Q2

REPORT INFORMATION
  Report Type: 
  Country: None (occurrence: None)
  Receive Date: 20120618
  Receipt Date: 20120608
  Transmission Date: 20120825
  Serious: Yes (Hospitalization)
  Sender: FDA-Public Use
  Company Number: US-BAYER-2012-031607

PATIENT
  Age: 29 Year
  Sex: Female
  Weight: 58.957 kg

DRUGS (11)
  1. YAZ [Suspect]
     Indication: ACNE
     Dosage: UNK
     Dates: start: 20020101, end: 20090101
  2. DROSPIRENONE AND ETHINYL ESTRADIOL [Suspect]
     Indication: ACNE
     Dosage: UNK
     Dates: start: 20020101, end: 20090101
  3. YASMIN [Suspect]
     Indication: PREMENSTRUAL SYNDROME
  4. YAZ [Suspect]
     Indication: CONTRACEPTION
  5. NEXIUM [Concomitant]
     Indication: GASTROINTESTINAL ULCER
  6. YAZ [Suspect]
     Indication: PREMENSTRUAL SYNDROME
  7. DROSPIRENONE AND ETHINYL ESTRADIOL [Suspect]
     Indication: CONTRACEPTION
  8. YASMIN [Suspect]
     Indication: CONTRACEPTION
  9. DROSPIRENONE AND ETHINYL ESTRADIOL [Suspect]
     Indication: PREMENSTRUAL SYNDROME
  10. NEXIUM [Concomitant]
     Indication: GASTROINTESTINAL DISORDER
     Dosage: 40 MG, UNK
     Route: 048
     Dates: start: 20060617, end: 20090108
  11. YASMIN [Suspect]
     Indication: ACNE
     Dosage: UNK
     Dates: start: 20020101, end: 20090101

REACTIONS (6)
  - BILIARY DYSKINESIA [None]
  - NAUSEA [None]
  - INJURY [None]
  - ABDOMINAL PAIN [None]
  - ABDOMINAL DISCOMFORT [None]
  - PAIN [None]
